FAERS Safety Report 4327486-5 (Version None)
Quarter: 2004Q1

REPORT INFORMATION
  Report Type: 
  Country: None (occurrence: None)
  Receive Date: 20040330
  Receipt Date: 20040330
  Transmission Date: 20041129
  Serious: Yes (Hospitalization)
  Sender: FDA-Public Use
  Company Number: None

PATIENT
  Age: 74 Year
  Sex: Female
  Weight: 99.7913 kg

DRUGS (1)
  1. TRILEPTAL [Suspect]
     Dosage: 300 MG BID X 2 MONTHS

REACTIONS (3)
  - ASTHENIA [None]
  - DIZZINESS [None]
  - PALPITATIONS [None]
